FAERS Safety Report 5665079-8 (Version None)
Quarter: 2008Q1

REPORT INFORMATION
  Report Type: 
  Country: None (occurrence: None)
  Receive Date: 20080314
  Receipt Date: 20071206
  Transmission Date: 20080703
  Serious: Yes (Hospitalization, Other)
  Sender: FDA-Public Use
  Company Number: US-BOEHRINGER INGELHEIM GMBH, GERMANY-2007-BP-00019BP

PATIENT
  Sex: Female

DRUGS (57)
  1. MIRAPEX [Suspect]
     Indication: RESTLESS LEGS SYNDROME
     Route: 048
     Dates: start: 20021205, end: 20060701
  2. CLONAZEPAM [Concomitant]
     Dates: start: 20031101
  3. SEROQUEL [Concomitant]
     Dates: start: 20060701
  4. LAMICTAL [Concomitant]
     Dates: start: 20070401
  5. LAMICTAL [Concomitant]
     Dates: start: 20070901
  6. GABAPENTIN [Concomitant]
     Indication: RESTLESS LEGS SYNDROME
     Dates: start: 20070901
  7. ATIVAN [Concomitant]
     Indication: ANXIETY
     Route: 048
     Dates: start: 20060101
  8. VALIUM [Concomitant]
  9. TEGRETOL [Concomitant]
     Route: 048
     Dates: start: 20061001
  10. TEGRETOL [Concomitant]
     Route: 048
     Dates: start: 20061023
  11. ORTHO EVRA [Concomitant]
     Dates: start: 20021201
  12. ESTRADIOL [Concomitant]
     Route: 062
     Dates: start: 20040401
  13. TOPAMAX [Concomitant]
     Route: 048
     Dates: start: 20030201
  14. TOPAMAX [Concomitant]
     Route: 048
     Dates: start: 20031101
  15. MINOCYCLINE HCL [Concomitant]
     Route: 048
     Dates: start: 20031201
  16. FIORINAL W/CODEINE [Concomitant]
     Indication: HEADACHE
     Dates: start: 20031101
  17. BUTALBITAL/ASA/CAFF/CODEINE [Concomitant]
     Dates: start: 20030901
  18. TYLENOL W/CODEINE #3 [Concomitant]
     Indication: COUGH
     Route: 048
     Dates: start: 20030401
  19. ACETAMINOPHEN W/ CODEINE #4 [Concomitant]
     Dates: start: 20050401
  20. AMBIEN [Concomitant]
     Route: 048
     Dates: start: 20030801
  21. AMBIEN [Concomitant]
     Route: 048
     Dates: start: 20030201
  22. AMBIEN CR [Concomitant]
     Dates: start: 20060701
  23. DIAZEPAM [Concomitant]
     Route: 048
     Dates: start: 20021001
  24. DIAZEPAM [Concomitant]
     Route: 048
     Dates: start: 20061001
  25. VIVELLE-DOT [Concomitant]
     Dates: start: 20030701
  26. ACETAMINOPHEN AND HYDROCODONE BITARTRATE [Concomitant]
     Route: 048
     Dates: start: 20030301
  27. ACETAMINOPHEN AND HYDROCODONE BITARTRATE [Concomitant]
     Route: 048
     Dates: start: 20030401
  28. SONATA [Concomitant]
     Dates: start: 20050701
  29. PROPRANOLOL [Concomitant]
  30. WELLBUTRIN SR [Concomitant]
     Route: 048
     Dates: start: 20020801
  31. HC IBUPROFEN [Concomitant]
     Dates: start: 20030501
  32. VICODIN [Concomitant]
     Dates: start: 20030501
  33. HYDROXYZINE HCL [Concomitant]
     Route: 048
     Dates: start: 20031101
  34. MOTRIN [Concomitant]
     Dates: start: 20030501
  35. MULTI-VITAMIN [Concomitant]
     Dates: start: 20030501
  36. CALCIUM [Concomitant]
     Dates: start: 20030501
  37. CYMBALTA [Concomitant]
     Dates: start: 20060701
  38. LEXAPRO [Concomitant]
     Dates: start: 20060701, end: 20061001
  39. NORCO [Concomitant]
     Dates: start: 20061101
  40. CHLORAL HYDRATE [Concomitant]
     Dates: start: 20070401
  41. FENTANYL TRANSDERMAL SYSTEM [Concomitant]
  42. TYLENOL (CAPLET) [Concomitant]
     Indication: PAIN IN EXTREMITY
     Dates: start: 20050801
  43. IBUPROFEN [Concomitant]
     Indication: PAIN IN EXTREMITY
     Dates: start: 20050801
  44. PREDNISONE TAB [Concomitant]
     Dates: start: 20050701
  45. EPIPEN [Concomitant]
     Dates: start: 20050701
  46. MOMETASONE OINTMENT [Concomitant]
     Dates: start: 20050701
  47. TOBRAMYCIN [Concomitant]
     Dates: start: 20060301
  48. LEVAQUIN [Concomitant]
     Dates: start: 20060301
  49. ZYRTEC [Concomitant]
     Route: 048
     Dates: start: 20030801
  50. ALLEGRA [Concomitant]
     Dates: start: 20030801
  51. WELLBUTRIN XL [Concomitant]
     Route: 048
     Dates: start: 20060701, end: 20061022
  52. H-C TUSSIVE SYRUP [Concomitant]
     Dates: start: 20060101
  53. HEMORRHOIDAL HC [Concomitant]
     Dates: start: 20050201
  54. FINACEA [Concomitant]
     Dates: start: 20031001
  55. PHENAZOPYRIDINE HCL TAB [Concomitant]
  56. ELAVIL [Concomitant]
     Dates: start: 20061101, end: 20061201
  57. HYDROCODONE/HOMATROPIN [Concomitant]
     Dates: start: 20030201

REACTIONS (8)
  - ANXIETY [None]
  - BIPOLAR DISORDER [None]
  - DEPRESSION [None]
  - LIBIDO INCREASED [None]
  - OBSESSIVE-COMPULSIVE DISORDER [None]
  - PATHOLOGICAL GAMBLING [None]
  - STRESS [None]
  - SUICIDE ATTEMPT [None]
